FAERS Safety Report 4480403-X (Version None)
Quarter: 2004Q4

REPORT INFORMATION
  Report Type: 
  Country: None (occurrence: None)
  Receive Date: 20041018
  Receipt Date: 20041004
  Transmission Date: 20050328
  Serious: Yes (Hospitalization, Disabling, Other)
  Sender: FDA-Public Use
  Company Number: 001-0945-M0200657

PATIENT
  Age: 44 Year
  Sex: Female
  Weight: 54.4316 kg

DRUGS (28)
  1. NEURONTIN [Suspect]
     Indication: BIPOLAR DISORDER
     Dosage: 1800 MG (DAILY), ORAL
     Route: 048
     Dates: start: 19990512, end: 20020422
  2. LAMOTRIGINE [Concomitant]
  3. LITHIUM CARBONATE [Concomitant]
  4. CLONAZEPAM [Concomitant]
  5. METHYLPHENIDATE HCL [Concomitant]
  6. LEVOTHYROXINE SODIUM [Concomitant]
  7. LIOTHYRONINE SODIUM [Concomitant]
  8. SERTRALINE HYROCHLORIDE (SERTRALINE HYDROCHLORIDE) [Concomitant]
  9. PICLOCARPINE HYDROCHLORIDE (PILOCARPINE HYDROCHLORIDE) [Concomitant]
  10. METOPROLOL SUCCINATE [Concomitant]
  11. LANSOPRAZOLE [Concomitant]
  12. HYOSCYAMINE SULFATE AND PHENOBARBITAL [Concomitant]
  13. DILITAZEM HYDROCHLORIDE (DILTIAZEM HYDROCHLORIDE) [Concomitant]
  14. BUPROPION HYDROCHLORIDE [Concomitant]
  15. CELEBREX [Concomitant]
  16. QUIETIAPINE FUMARATE (QUETIAPINE FUMARATE) [Concomitant]
  17. METOPROLOL TARTRATE [Concomitant]
  18. CITALOPRAM HYDROBROMIDE [Concomitant]
  19. OLANZAPINE [Concomitant]
  20. OMEPRAZOLE [Concomitant]
  21. NASAL PREPARATIONS (NASAL PREPARATIONS) [Concomitant]
  22. NEFAZODONE HCL [Concomitant]
  23. TOTOLIN (GUIAENESIN, PHENYLPROPANOLAMINE HYDROCHLORIDE) [Concomitant]
  24. MECLOZINE (MECLOZINE) [Concomitant]
  25. FLUTICASONE PROPIONATE [Concomitant]
  26. TRIMETHOBENAZAMIDE HYDROCHLORIDE (TRIMETHOBENZAMIDE HYDROCHLORIDE) [Concomitant]
  27. RESPAIRE-SR-120 (GUAIFENESIN, PSEUDOEPHEDRINE HYDROCHLORIDE) [Concomitant]
  28. RISPERDAL [Concomitant]

REACTIONS (105)
  - ABDOMINAL PAIN UPPER [None]
  - AFFECT LABILITY [None]
  - AGITATION [None]
  - ANGER [None]
  - APPLICATION SITE BURNING [None]
  - ARTHRALGIA [None]
  - ARTHRITIS [None]
  - ARTHROPOD BITE [None]
  - ASTHENIA [None]
  - ATAXIA [None]
  - BLOOD GLUCOSE INCREASED [None]
  - CARPAL TUNNEL SYNDROME [None]
  - CHANGE OF BOWEL HABIT [None]
  - CHEST PAIN [None]
  - CHROMATURIA [None]
  - CONSTIPATION [None]
  - CONTUSION [None]
  - CONVULSION [None]
  - DEAFNESS [None]
  - DECREASED APPETITE [None]
  - DEPRESSION [None]
  - DIARRHOEA [None]
  - DISEASE RECURRENCE [None]
  - DISSOCIATIVE DISORDER [None]
  - DISTURBANCE IN ATTENTION [None]
  - DIZZINESS [None]
  - DRY MOUTH [None]
  - DYSARTHRIA [None]
  - DYSPEPSIA [None]
  - DYSPHAGIA [None]
  - DYSPNOEA [None]
  - DYSURIA [None]
  - ESSENTIAL TREMOR [None]
  - EUSTACHIAN TUBE DYSFUNCTION [None]
  - FALL [None]
  - FIBROCYSTIC BREAST DISEASE [None]
  - FLAT AFFECT [None]
  - GASTROOESOPHAGEAL REFLUX DISEASE [None]
  - GOITRE [None]
  - GRANULOMA [None]
  - HALLUCINATION, VISUAL [None]
  - HAND FRACTURE [None]
  - HEAD INJURY [None]
  - HEADACHE [None]
  - HEART RATE INCREASED [None]
  - HEART RATE IRREGULAR [None]
  - HORDEOLUM [None]
  - HOT FLUSH [None]
  - HYPOAESTHESIA [None]
  - HYPOTHYROIDISM [None]
  - IMPAIRED HEALING [None]
  - INSOMNIA [None]
  - INTERVERTEBRAL DISC DEGENERATION [None]
  - IRRITABILITY [None]
  - JOINT INJURY [None]
  - JOINT SPRAIN [None]
  - JOINT SWELLING [None]
  - LARYNGITIS [None]
  - LEGAL PROBLEM [None]
  - MEMORY IMPAIRMENT [None]
  - MENIERE'S DISEASE [None]
  - MENTAL IMPAIRMENT [None]
  - MOUTH BREATHING [None]
  - NASAL ULCER [None]
  - NAUSEA [None]
  - NERVOUS SYSTEM DISORDER [None]
  - NEUROPATHY [None]
  - NEUTROPHIL COUNT ABNORMAL [None]
  - NYSTAGMUS [None]
  - OTITIS MEDIA [None]
  - PAIN IN EXTREMITY [None]
  - PARAESTHESIA [None]
  - PHARYNGITIS [None]
  - POOR PERIPHERAL CIRCULATION [None]
  - RADICULOPATHY [None]
  - RASH ERYTHEMATOUS [None]
  - RED BLOOD CELL COUNT DECREASED [None]
  - RED CELL DISTRIBUTION WIDTH INCREASED [None]
  - RHINITIS ALLERGIC [None]
  - ROAD TRAFFIC ACCIDENT [None]
  - SEDATION [None]
  - SINUS DISORDER [None]
  - SKIN LACERATION [None]
  - SNEEZING [None]
  - SOMNOLENCE [None]
  - STRESS SYMPTOMS [None]
  - SUICIDAL IDEATION [None]
  - SWELLING [None]
  - SYNCOPE [None]
  - TARDIVE DYSKINESIA [None]
  - TENDONITIS [None]
  - THIRST [None]
  - THYROID DISORDER [None]
  - TINNITUS [None]
  - UNRESPONSIVE TO VERBAL STIMULI [None]
  - URINARY TRACT INFECTION [None]
  - VAGINAL CANDIDIASIS [None]
  - VERTIGO POSITIONAL [None]
  - VESTIBULAR NEURONITIS [None]
  - VESTIBULITIS [None]
  - VIRAL LABYRINTHITIS [None]
  - VISION BLURRED [None]
  - WEIGHT FLUCTUATION [None]
  - WHITE BLOOD CELL COUNT DECREASED [None]
  - WOUND INFECTION [None]
